FAERS Safety Report 23851761 (Version 1)
Quarter: 2024Q2

REPORT INFORMATION
  Report Type: Spontaneous
  Country: ZA (occurrence: None)
  Receive Date: 20240514
  Receipt Date: 20240514
  Transmission Date: 20240716
  Serious: Yes (Hospitalization)
  Sender: FDA-Public Use
  Company Number: 2024A106893

PATIENT
  Age: 57 Year
  Sex: Female

DRUGS (7)
  1. DAPAGLIFLOZIN PROPANEDIOL [Suspect]
     Active Substance: DAPAGLIFLOZIN PROPANEDIOL
     Indication: Diabetes mellitus
     Dosage: 10.0MG UNKNOWN
     Route: 048
  2. METFORMIN HYDROCHLORIDE [Concomitant]
     Active Substance: METFORMIN HYDROCHLORIDE
     Indication: Diabetes mellitus
     Dosage: 1000.0MG UNKNOWN
     Route: 048
  3. GLICLAZIDE [Concomitant]
     Active Substance: GLICLAZIDE
     Indication: Diabetes mellitus
     Dosage: 30.0MG UNKNOWN
     Route: 048
  4. LIPOGEN [Concomitant]
     Indication: Blood cholesterol
     Dosage: 10.0MG UNKNOWN
     Route: 048
  5. ETORICOXIB [Concomitant]
     Active Substance: ETORICOXIB
     Indication: Pain
     Dosage: 90.0MG UNKNOWN
     Route: 048
  6. ADCO-METRONIDAZOLE [Concomitant]
     Indication: Antibiotic therapy
     Dosage: 400.0MG UNKNOWN
     Route: 048
  7. SANDOZ CO-AMOXYCLAV [Concomitant]
     Indication: Antibiotic therapy
     Dosage: 1000.0MG UNKNOWN
     Route: 048

REACTIONS (1)
  - Abscess [Unknown]
